FAERS Safety Report 21328702 (Version 1)
Quarter: 2022Q3

REPORT INFORMATION
  Report Type: Spontaneous
  Country: US (occurrence: None)
  Receive Date: 20220904
  Receipt Date: 20220904
  Transmission Date: 20221027
  Serious: Yes (Other)
  Sender: FDA-Public Use
  Company Number: None

PATIENT
  Sex: Female

DRUGS (1)
  1. OXYTOCIN [Suspect]
     Active Substance: OXYTOCIN

REACTIONS (5)
  - Uterine hypertonus [None]
  - Foetal death [None]
  - Maternal drugs affecting foetus [None]
  - Contraindicated product administered [None]
  - Product label issue [None]
